FAERS Safety Report 19431552 (Version 1)
Quarter: 2021Q2

REPORT INFORMATION
  Report Type: Spontaneous
  Country: US (occurrence: US)
  Receive Date: 20210618
  Receipt Date: 20210618
  Transmission Date: 20210717
  Serious: Yes (Other)
  Sender: FDA-Public Use
  Company Number: US-SUN PHARMACEUTICAL INDUSTRIES LTD-2021R1-299091

PATIENT
  Age: 70 Year
  Sex: Female

DRUGS (5)
  1. ALENDRONIC ACID [Suspect]
     Active Substance: ALENDRONIC ACID
     Indication: OSTEOPENIA
     Dosage: 70 MILLIGRAM, WEEKLY
     Route: 065
  2. CALCIUM CITRATE [Concomitant]
     Active Substance: CALCIUM CITRATE
     Indication: PRODUCT USED FOR UNKNOWN INDICATION
     Dosage: 1800 MILLIGRAM, DAILY
     Route: 065
  3. LEVOTHYROXINE. [Concomitant]
     Active Substance: LEVOTHYROXINE
     Indication: HYPOTHYROIDISM
     Dosage: 50 MICROGRAM, DAILY
     Route: 065
  4. ESTROGEN [Concomitant]
     Active Substance: ESTROGENS
     Indication: MENOPAUSAL SYMPTOMS
     Dosage: 0.45 MILLIGRAM, DAILY
     Route: 065
  5. VITAMIN D3 [Concomitant]
     Active Substance: CHOLECALCIFEROL
     Indication: PRODUCT USED FOR UNKNOWN INDICATION
     Dosage: 2000 IU/DAY
     Route: 065

REACTIONS (3)
  - Atypical femur fracture [Recovered/Resolved]
  - Wrist fracture [Recovered/Resolved]
  - Disease progression [Recovered/Resolved]
